FAERS Safety Report 9230777 (Version 2)
Quarter: 2013Q2

REPORT INFORMATION
  Report Type: Spontaneous
  Country: FR (occurrence: FR)
  Receive Date: 20130415
  Receipt Date: 20130418
  Transmission Date: 20140414
  Serious: Yes (Hospitalization)
  Sender: FDA-Public Use
  Company Number: FR-GILEAD-2013-0073240

PATIENT
  Age: 33 Year
  Sex: Female

DRUGS (5)
  1. TRUVADA [Suspect]
     Indication: HIV INFECTION
     Dosage: 1 DF, QD
     Route: 048
     Dates: start: 20120622
  2. VIRAMUNE [Suspect]
     Indication: HIV INFECTION
     Dosage: 200 MG, QD
     Route: 048
     Dates: start: 20120622, end: 20120707
  3. VIRAMUNE [Suspect]
     Dosage: 200 MG, BID
     Route: 048
     Dates: start: 201207, end: 20120718
  4. NORVIR [Concomitant]
     Indication: HIV INFECTION
     Dosage: UNK
     Dates: start: 20120718
  5. PREZISTA [Concomitant]
     Indication: HIV INFECTION
     Dosage: UNK
     Dates: start: 20120718

REACTIONS (7)
  - Face oedema [Recovered/Resolved]
  - White blood cell count increased [Recovered/Resolved]
  - Lymphocyte count decreased [Recovering/Resolving]
  - Pyrexia [Recovered/Resolved]
  - Neutrophil count decreased [Recovered/Resolved]
  - Transaminases increased [Recovered/Resolved]
  - Rash [Recovered/Resolved]
